FAERS Safety Report 8962466 (Version 2)
Quarter: 2013Q2

REPORT INFORMATION
  Report Type: Report from Study
  Country: US (occurrence: US)
  Receive Date: 20121214
  Receipt Date: 20130624
  Transmission Date: 20140414
  Serious: Yes (Hospitalization)
  Sender: FDA-Public Use
  Company Number: US-JNJFOC-20121204613

PATIENT
  Age: 28 Year
  Sex: Female
  Weight: 54 kg

DRUGS (2)
  1. TYLENOL [Suspect]
     Route: 048
  2. TYLENOL [Suspect]
     Indication: PRODUCT USED FOR UNKNOWN INDICATION
     Dosage: UNSPECIFIED STRENGTH, ONE-HALF BOTTLE OF ^TYLENOL^
     Route: 048
     Dates: start: 20121207

REACTIONS (2)
  - Self injurious behaviour [Recovered/Resolved]
  - Intentional overdose [Recovered/Resolved]
